FAERS Safety Report 8115631-5 (Version None)
Quarter: 2012Q1

REPORT INFORMATION
  Report Type: 
  Country: None (occurrence: None)
  Receive Date: 20120206
  Receipt Date: 20120130
  Transmission Date: 20120608
  Serious: No
  Sender: FDA-Public Use
  Company Number: US-BAYER-2012-011042

PATIENT

DRUGS (3)
  1. NYQUIL [Suspect]
     Indication: PRODUCT USED FOR UNKNOWN INDICATION
  2. THERAFLU [Suspect]
     Indication: PRODUCT USED FOR UNKNOWN INDICATION
  3. ALEVE (CAPLET) [Suspect]
     Indication: PRODUCT USED FOR UNKNOWN INDICATION
     Route: 048

REACTIONS (2)
  - SEDATION [None]
  - ABNORMAL DREAMS [None]
